FAERS Safety Report 16326625 (Version 1)
Quarter: 2019Q2

REPORT INFORMATION
  Report Type: Spontaneous
  Country: JP (occurrence: JP)
  Receive Date: 20190517
  Receipt Date: 20190517
  Transmission Date: 20190711
  Serious: Yes (Other)
  Sender: FDA-Public Use
  Company Number: JP-PFIZER INC-2019197314

PATIENT
  Age: 62 Year
  Sex: Female

DRUGS (9)
  1. EVISTA [Suspect]
     Active Substance: RALOXIFENE HYDROCHLORIDE
     Dosage: 60 MG, UNK
     Dates: end: 20190507
  2. LYRICA [Suspect]
     Active Substance: PREGABALIN
     Dosage: 125 MG, DAILY (50MG IN THE MORNING/75MG IN THE EVENNING)
     Route: 048
     Dates: start: 20190430, end: 20190507
  3. BILANOA [Suspect]
     Active Substance: BILASTINE
     Dosage: 20 MG, UNK
     Dates: start: 20190423, end: 20190507
  4. NEUROTROPIN [RABBIT VACCINIA EXTRACT] [Suspect]
     Active Substance: ORYCTOLAGUS CUNICULUS SKIN
     Dosage: 4 DF, DAILY
     Dates: start: 20190426, end: 20190430
  5. LYRICA [Suspect]
     Active Substance: PREGABALIN
     Indication: NEURALGIA
     Dosage: 100 MG, DAILY
     Route: 048
     Dates: start: 20190426, end: 20190429
  6. OMNIPAQUE [Suspect]
     Active Substance: IOHEXOL
     Indication: COMPUTERISED TOMOGRAM ABDOMEN
     Dosage: UNK
     Dates: start: 20190501
  7. PRIMPERAN [Suspect]
     Active Substance: METOCLOPRAMIDE HYDROCHLORIDE
     Dosage: 15 MG, DAILY
     Dates: start: 20190501, end: 20190507
  8. FAMVIR [Suspect]
     Active Substance: FAMCICLOVIR
     Indication: HERPES ZOSTER
     Dosage: 1500 MG, UNK
     Dates: start: 20190423, end: 20190501
  9. GASOAL [Suspect]
     Active Substance: DIMETHICONE
     Dosage: 125 MG, DAILY
     Dates: start: 20190501, end: 20190507

REACTIONS (3)
  - Eczema [Unknown]
  - Drug eruption [Recovering/Resolving]
  - Contrast media allergy [Not Recovered/Not Resolved]

NARRATIVE: CASE EVENT DATE: 20190507
